FAERS Safety Report 9858147 (Version 5)
Quarter: 2017Q1

REPORT INFORMATION
  Report Type: Spontaneous
  Country: US (occurrence: US)
  Receive Date: 20140131
  Receipt Date: 20170207
  Transmission Date: 20170429
  Serious: Yes (Hospitalization, Other)
  Sender: FDA-Public Use
  Company Number: US-009507513-1401USA012002

PATIENT
  Sex: Female

DRUGS (1)
  1. FOSAMAX [Suspect]
     Active Substance: ALENDRONATE SODIUM
     Indication: OSTEOPOROSIS
     Dosage: 70 MG, QW
     Route: 048
     Dates: start: 199509, end: 20050517

REACTIONS (26)
  - Tooth extraction [Unknown]
  - Fall [Unknown]
  - Femur fracture [Unknown]
  - Open reduction of fracture [Unknown]
  - Hypertension [Unknown]
  - Breast prosthesis implantation [Unknown]
  - Activated partial thromboplastin time prolonged [Unknown]
  - Gastrooesophageal reflux disease [Unknown]
  - Embolism [Unknown]
  - Steroid therapy [Unknown]
  - Drug dependence [Unknown]
  - Prothrombin level increased [Unknown]
  - Liver disorder [Unknown]
  - Hepatic steatosis [Unknown]
  - Oral surgery [Unknown]
  - Volvulus [Unknown]
  - Thrombosis [Unknown]
  - Hepatitis [Unknown]
  - Raynaud^s phenomenon [Unknown]
  - Appendicectomy [Unknown]
  - International normalised ratio increased [Recovered/Resolved]
  - Hypokalaemia [Unknown]
  - Osteoporosis [Unknown]
  - Denture wearer [Unknown]
  - Migraine [Unknown]
  - Arthritis [Unknown]

NARRATIVE: CASE EVENT DATE: 1999
